FAERS Safety Report 16894875 (Version 1)
Quarter: 2019Q4

REPORT INFORMATION
  Report Type: Spontaneous
  Country: US (occurrence: US)
  Receive Date: 20191008
  Receipt Date: 20191008
  Transmission Date: 20200122
  Serious: No
  Sender: FDA-Public Use
  Company Number: US-INDIVIOR US-INDV-114789-2018

PATIENT
  Age: 45 Year
  Sex: Female

DRUGS (1)
  1. SUBOXONE [Suspect]
     Active Substance: BUPRENORPHINE HYDROCHLORIDE\NALOXONE HYDROCHLORIDE
     Indication: DRUG DEPENDENCE
     Dosage: 8 MG, TWICE DAILY
     Route: 060

REACTIONS (5)
  - Rhinorrhoea [Not Recovered/Not Resolved]
  - Feeding disorder [Unknown]
  - Inappropriate schedule of product administration [Unknown]
  - Fluid intake reduced [Unknown]
  - Dysgeusia [Unknown]

NARRATIVE: CASE EVENT DATE: 201809
